FAERS Safety Report 7793612-9 (Version None)
Quarter: 2011Q4

REPORT INFORMATION
  Report Type: 
  Country: None (occurrence: None)
  Receive Date: 20111003
  Receipt Date: 20110811
  Transmission Date: 20120403
  Serious: Yes (Other)
  Sender: FDA-Public Use
  Company Number: PHHY2011BR73090

PATIENT
  Sex: Female
  Weight: 100 kg

DRUGS (2)
  1. FORMOTEROL FUMARATE [Suspect]
     Indication: ASTHMA
     Dosage: UNK UKN, UNK
  2. FORMOTEROL FUMARATE [Suspect]
     Dosage: (12-400 MCG) 1 INHALATION WITH EVERY ACTIVE INGREDIENT TWICE DAILY, ON MORNING AND AT NIGHT

REACTIONS (7)
  - BREAST DISCOLOURATION [None]
  - NERVOUSNESS [None]
  - EMPHYSEMA [None]
  - PAIN [None]
  - MASS [None]
  - MALAISE [None]
  - PYREXIA [None]
